FAERS Safety Report 11804308 (Version 1)
Quarter: 2015Q4

REPORT INFORMATION
  Report Type: Spontaneous
  Country: US (occurrence: US)
  Receive Date: 20151204
  Receipt Date: 20151204
  Transmission Date: 20160305
  Serious: No
  Sender: FDA-Public Use
  Company Number: US-IMPAX LABORATORIES, INC-2015-IPXL-00635

PATIENT
  Age: 53 Year
  Sex: Female
  Weight: 81.63 kg

DRUGS (2)
  1. OXYBUTYNIN CHLORIDE ER [Suspect]
     Active Substance: OXYBUTYNIN CHLORIDE
     Indication: URGE INCONTINENCE
     Dosage: 5 MG, ONE BY MOUTH
     Route: 048
     Dates: start: 201505, end: 20150530
  2. OXYBUTYNIN CHLORIDE ER [Suspect]
     Active Substance: OXYBUTYNIN CHLORIDE
     Indication: STRESS URINARY INCONTINENCE

REACTIONS (2)
  - Feeling abnormal [Recovered/Resolved]
  - Dizziness [Recovered/Resolved]

NARRATIVE: CASE EVENT DATE: 20150530
